FAERS Safety Report 7091674-8 (Version None)
Quarter: 2010Q4

REPORT INFORMATION
  Report Type: 
  Country: None (occurrence: None)
  Receive Date: 20101109
  Receipt Date: 20090121
  Transmission Date: 20110411
  Serious: No
  Sender: FDA-Public Use
  Company Number: US-KINGPHARMUSA00001-K200900071

PATIENT
  Age: 2 Year
  Sex: Male

DRUGS (1)
  1. EPIPEN JR. [Suspect]
     Indication: FOOD ALLERGY
     Dosage: 0.15 MG, SINGLE
     Route: 030
     Dates: start: 20090121, end: 20090121

REACTIONS (4)
  - EXPIRED DRUG ADMINISTERED [None]
  - INJECTION SITE HAEMATOMA [None]
  - INJECTION SITE INJURY [None]
  - INJECTION SITE PAIN [None]
